FAERS Safety Report 8733653 (Version 2)
Quarter: 2012Q4

REPORT INFORMATION
  Report Type: 
  Country: US (occurrence: US)
  Receive Date: 20120821
  Receipt Date: 20120903
  Transmission Date: 20130627
  Serious: Yes (Other)
  Sender: FDA-Public Use
  Company Number: PHEH2012US016061

PATIENT
  Age: 61 Year
  Sex: Male
  Weight: 81.6 kg

DRUGS (9)
  1. GLEEVEC [Suspect]
     Indication: GASTROINTESTINAL STROMAL TUMOUR
     Dosage: 400 mg, UNK
     Route: 048
     Dates: start: 20111205
  2. GLEEVEC [Suspect]
     Dosage: 200 mg, UNK
     Route: 048
     Dates: start: 20111205
  3. GLEEVEC [Suspect]
     Dosage: 300 mg, UNK
     Route: 048
     Dates: start: 20111205
  4. VICODIN [Concomitant]
     Indication: BREAKTHROUGH PAIN
  5. CIALIS [Concomitant]
  6. RELPAX [Concomitant]
     Indication: HEADACHE
  7. IRON SUPPLEMENTS [Concomitant]
     Indication: HEADACHE
  8. COPAXONE [Concomitant]
     Indication: MULTIPLE SCLEROSIS
     Dosage: 25 mg, UNK
     Route: 058
  9. MULTIVITAMIN [Concomitant]
     Indication: MULTIPLE SCLEROSIS

REACTIONS (7)
  - Retinal detachment [Recovering/Resolving]
  - Retinal pigment epithelial tear [Recovering/Resolving]
  - Skin toxicity [Unknown]
  - Rash [Unknown]
  - Pruritus [Unknown]
  - Nail bed disorder [Unknown]
  - Wrong technique in drug usage process [Unknown]
